FAERS Safety Report 6203294-5 (Version None)
Quarter: 2009Q2

REPORT INFORMATION
  Report Type: 
  Country: None (occurrence: None)
  Receive Date: 20090527
  Receipt Date: 20090518
  Transmission Date: 20091009
  Serious: Yes (Other)
  Sender: FDA-Public Use
  Company Number: PHHY2009AU19094

PATIENT
  Sex: Female

DRUGS (1)
  1. TEGRETOL [Suspect]
     Indication: BIPOLAR DISORDER
     Dosage: 100 MG, UNK
     Dates: start: 20090513

REACTIONS (10)
  - ABDOMINAL DISTENSION [None]
  - HEADACHE [None]
  - HYPERTENSION [None]
  - MICTURITION DISORDER [None]
  - NAUSEA [None]
  - OCULAR HYPERAEMIA [None]
  - OEDEMA PERIPHERAL [None]
  - PANIC REACTION [None]
  - URINARY INCONTINENCE [None]
  - WHEEZING [None]
